FAERS Safety Report 7249660-0 (Version None)
Quarter: 2011Q1

REPORT INFORMATION
  Report Type: 
  Country: None (occurrence: None)
  Receive Date: 20110128
  Receipt Date: 20110124
  Transmission Date: 20110831
  Serious: No
  Sender: FDA-Public Use
  Company Number: US-JNJFOC-20110106882

PATIENT
  Sex: Female
  Weight: 43.09 kg

DRUGS (5)
  1. IMITREX [Concomitant]
     Indication: MIGRAINE
     Route: 048
  2. FENTANYL-100 [Suspect]
     Indication: ARTHRALGIA
     Route: 062
  3. FENTANYL-100 [Suspect]
     Indication: SCOLIOSIS
     Route: 062
  4. FENTANYL-100 [Suspect]
     Indication: ARTHRALGIA
     Route: 062
  5. FENTANYL-100 [Suspect]
     Indication: SCOLIOSIS
     Route: 062

REACTIONS (4)
  - WRONG TECHNIQUE IN DRUG USAGE PROCESS [None]
  - ADVERSE EVENT [None]
  - INAPPROPRIATE SCHEDULE OF DRUG ADMINISTRATION [None]
  - PRODUCT QUALITY ISSUE [None]
